FAERS Safety Report 22798833 (Version 4)
Quarter: 2023Q4

REPORT INFORMATION
  Report Type: Spontaneous
  Country: US (occurrence: US)
  Receive Date: 20230808
  Receipt Date: 20231016
  Transmission Date: 20240109
  Serious: No
  Sender: FDA-Public Use
  Company Number: US-PFIZER INC-202300263500

PATIENT
  Age: 11 Year
  Sex: Female
  Weight: 46.27 kg

DRUGS (1)
  1. GENOTROPIN [Suspect]
     Active Substance: SOMATROPIN
     Indication: Growth hormone deficiency
     Dosage: 2 MG

REACTIONS (3)
  - Poor quality device used [Unknown]
  - Device breakage [Unknown]
  - Device leakage [Unknown]

NARRATIVE: CASE EVENT DATE: 20230727
